FAERS Safety Report 8226467-9 (Version None)
Quarter: 2012Q1

REPORT INFORMATION
  Report Type: 
  Country: None (occurrence: None)
  Receive Date: 20120322
  Receipt Date: 20120313
  Transmission Date: 20120608
  Serious: Yes (Other)
  Sender: FDA-Public Use
  Company Number: US-ASTRAZENECA-2012SE17103

PATIENT
  Age: 61 Year
  Sex: Female
  Weight: 63.5 kg

DRUGS (3)
  1. CRESTOR [Suspect]
     Indication: BLOOD CHOLESTEROL ABNORMAL
     Route: 048
     Dates: start: 20081101
  2. ASPIRIN [Concomitant]
  3. PLAVIX [Concomitant]

REACTIONS (10)
  - ASTHENIA [None]
  - MUSCULOSKELETAL STIFFNESS [None]
  - THROAT IRRITATION [None]
  - PAIN IN EXTREMITY [None]
  - ABDOMINAL DISCOMFORT [None]
  - VITREOUS DETACHMENT [None]
  - MYALGIA [None]
  - EXTREMITY CONTRACTURE [None]
  - ABASIA [None]
  - BURSITIS [None]
